FAERS Safety Report 18985232 (Version 1)
Quarter: 2021Q1

REPORT INFORMATION
  Report Type: Spontaneous
  Country: US (occurrence: US)
  Receive Date: 20210309
  Receipt Date: 20210309
  Transmission Date: 20210420
  Serious: Yes (Death, Other)
  Sender: FDA-Public Use
  Company Number: US-AUROBINDO-AUR-APL-2019-050105

PATIENT
  Sex: Female

DRUGS (6)
  1. RITUXIMAB. [Suspect]
     Active Substance: RITUXIMAB
     Indication: NON-HODGKIN^S LYMPHOMA
     Dosage: 250 MILLIGRAM/SQ. METER, ONCE A DAY
     Route: 042
  2. ZEVALIN [Suspect]
     Active Substance: IBRITUMOMAB TIUXETAN
     Dosage: 1 UNK, ONCE A DAY
     Route: 042
     Dates: start: 20060103, end: 20060103
  3. INDIUM (111 IN) [Suspect]
     Active Substance: INDIUM IN-111
     Indication: NON-HODGKIN^S LYMPHOMA
     Dosage: 1, 24 HOURS
     Route: 042
     Dates: start: 20060103, end: 20060103
  4. YTTRIUM Y?90 [Suspect]
     Active Substance: YTTRIUM CHLORIDE Y-90
     Indication: NON-HODGKIN^S LYMPHOMA
     Dosage: UNK
     Route: 065
  5. ZEVALIN [Suspect]
     Active Substance: IBRITUMOMAB TIUXETAN
     Indication: NON-HODGKIN^S LYMPHOMA
     Dosage: 1 UNK, ONCE A DAY
     Route: 042
  6. RITUXIMAB. [Suspect]
     Active Substance: RITUXIMAB
     Dosage: 250 MILLIGRAM/SQ. METER, ONCE A DAY
     Route: 042
     Dates: start: 20060103, end: 20060103

REACTIONS (1)
  - Death [Fatal]

NARRATIVE: CASE EVENT DATE: 20060103
